FAERS Safety Report 15591041 (Version 1)
Quarter: 2018Q4

REPORT INFORMATION
  Report Type: Spontaneous
  Country: DE (occurrence: DE)
  Receive Date: 20181106
  Receipt Date: 20181106
  Transmission Date: 20190205
  Serious: Yes (Congenital Anomaly)
  Sender: FDA-Public Use
  Company Number: DE-PFIZER INC-2018445794

PATIENT
  Age: 1 Day
  Sex: Male
  Weight: 3.2 kg

DRUGS (4)
  1. FOLSAEURE [Concomitant]
     Active Substance: FOLIC ACID
     Indication: PROPHYLAXIS OF NEURAL TUBE DEFECT
     Dosage: 5 MG, 1X/DAY   (0. - 41.4. GESTATIONAL WEEK)
     Route: 064
     Dates: start: 20170427, end: 20180212
  2. LAMOTRIGIN [Suspect]
     Active Substance: LAMOTRIGINE
     Indication: EPILEPSY
     Dosage: 350 MG, DAILY (0. - 41.4. GESTATIONAL WEEK)
     Route: 064
     Dates: start: 20170427, end: 20180212
  3. LAMOTRIGIN [Suspect]
     Active Substance: LAMOTRIGINE
     Dosage: DOSAGE 250-350 MG/D, AS NEEDED FOR A STEADY SERUM LEVEL
     Route: 064
  4. LEVETIRACETAM. [Suspect]
     Active Substance: LEVETIRACETAM
     Indication: EPILEPSY
     Dosage: 500 MG, 1X/DAY (0. - 41.4. GESTATIONAL WEEK)
     Route: 064
     Dates: start: 20170427, end: 20180212

REACTIONS (2)
  - Pulmonary valve stenosis congenital [Recovered/Resolved with Sequelae]
  - Maternal exposure during pregnancy [Recovered/Resolved with Sequelae]

NARRATIVE: CASE EVENT DATE: 20180212
